FAERS Safety Report 16332630 (Version 2)
Quarter: 2019Q2

REPORT INFORMATION
  Report Type: Spontaneous
  Country: US (occurrence: US)
  Receive Date: 20190520
  Receipt Date: 20190528
  Transmission Date: 20190711
  Serious: Yes (Other)
  Sender: FDA-Public Use
  Company Number: US-PFIZER INC-2019208032

PATIENT
  Age: 58 Year
  Sex: Female
  Weight: 122 kg

DRUGS (1)
  1. LYRICA [Suspect]
     Active Substance: PREGABALIN
     Indication: NEURALGIA
     Dosage: 150 MG, 3X/DAY
     Route: 048

REACTIONS (8)
  - Malaise [Unknown]
  - Weight increased [Unknown]
  - Pain [Unknown]
  - Feeling abnormal [Unknown]
  - Loss of personal independence in daily activities [Unknown]
  - Drug dependence [Unknown]
  - Depression [Unknown]
  - Frustration tolerance decreased [Unknown]
